FAERS Safety Report 13451709 (Version 1)
Quarter: 2017Q2

REPORT INFORMATION
  Report Type: Spontaneous
  Country: US (occurrence: US)
  Receive Date: 20170418
  Receipt Date: 20170418
  Transmission Date: 20170830
  Serious: No
  Sender: FDA-Public Use
  Company Number: US-PFIZER INC-2017162198

PATIENT
  Age: 52 Year
  Sex: Male

DRUGS (3)
  1. WELCHOL [Suspect]
     Active Substance: COLESEVELAM HYDROCHLORIDE
     Dosage: UNK
  2. SIMVASTATIN. [Suspect]
     Active Substance: SIMVASTATIN
     Dosage: UNK
  3. AXID AR [Suspect]
     Active Substance: NIZATIDINE
     Dosage: UNK

REACTIONS (1)
  - Drug hypersensitivity [Unknown]
